FAERS Safety Report 7933003-0 (Version None)
Quarter: 2011Q4

REPORT INFORMATION
  Report Type: 
  Country: None (occurrence: None)
  Receive Date: 20111122
  Receipt Date: 20111110
  Transmission Date: 20120403
  Serious: Yes (Hospitalization, Other)
  Sender: FDA-Public Use
  Company Number: JP-BAYER-200913259BYL

PATIENT
  Age: 72 Year
  Sex: Male
  Weight: 70.4 kg

DRUGS (3)
  1. LANTUS [Concomitant]
     Route: 058
     Dates: start: 20040101
  2. NEXAVAR [Suspect]
     Indication: HEPATIC NEOPLASM MALIGNANT
     Route: 048
     Dates: start: 20090831, end: 20090904
  3. NOVORAPID [Concomitant]
     Dosage: 30 U (DAILY DOSE), BID, SUBCUTANEOUS
     Route: 058
     Dates: start: 20040101

REACTIONS (5)
  - PYREXIA [None]
  - HEPATIC ENCEPHALOPATHY [None]
  - HEPATIC FUNCTION ABNORMAL [None]
  - OESOPHAGEAL VARICES HAEMORRHAGE [None]
  - ABDOMINAL PAIN [None]
